FAERS Safety Report 7302230-8 (Version None)
Quarter: 2011Q1

REPORT INFORMATION
  Report Type: 
  Country: None (occurrence: None)
  Receive Date: 20110218
  Receipt Date: 20110217
  Transmission Date: 20110831
  Serious: Yes (Other)
  Sender: FDA-Public Use
  Company Number: GXKR2011DE00649

PATIENT
  Sex: Male
  Weight: 71 kg

DRUGS (1)
  1. AZITHROMYCIN [Suspect]
     Indication: INFLUENZA
     Dosage: 1 TABLET/DAILY
     Route: 048

REACTIONS (3)
  - ASTHENIA [None]
  - DEPRESSION [None]
  - APATHY [None]
